FAERS Safety Report 9434143 (Version 1)
Quarter: 2013Q3

REPORT INFORMATION
  Report Type: Spontaneous
  Country: IT (occurrence: IT)
  Receive Date: 20130801
  Receipt Date: 20130801
  Transmission Date: 20140515
  Serious: Yes (Hospitalization)
  Sender: FDA-Public Use
  Company Number: IT-ABBOTT-13X-083-1124884-00

PATIENT
  Age: 74 Year
  Sex: Male

DRUGS (1)
  1. KLACID [Suspect]
     Indication: HYPERPYREXIA
     Dosage: FORM STRENGTH: 500 MG/10 ML
     Route: 042
     Dates: start: 20130712, end: 20130718

REACTIONS (2)
  - Cerebrovascular accident [Unknown]
  - Clostridium difficile colitis [Recovering/Resolving]
